FAERS Safety Report 10728836 (Version 1)
Quarter: 2015Q1

REPORT INFORMATION
  Report Type: Spontaneous
  Country: US (occurrence: None)
  Receive Date: 20150120
  Receipt Date: 20150120
  Transmission Date: 20150721
  Serious: No
  Sender: FDA-Public Use
  Company Number: None

PATIENT
  Age: 53 Year
  Sex: Female
  Weight: 52.16 kg

DRUGS (1)
  1. ABREVA [Suspect]
     Active Substance: DOCOSANOL
     Indication: ORAL HERPES
     Dosage: TWICE DAILY, APPLIED TO A SURFACE, USUALLY THE SKIN?
     Dates: start: 20150112, end: 20150116

REACTIONS (1)
  - Headache [None]

NARRATIVE: CASE EVENT DATE: 20150116
